FAERS Safety Report 20513197 (Version 25)
Quarter: 2025Q3

REPORT INFORMATION
  Report Type: Report from Study
  Country: US (occurrence: US)
  Receive Date: 20220224
  Receipt Date: 20250716
  Transmission Date: 20251020
  Serious: No
  Sender: TAKEDA
  Company Number: US-PAREXEL-2021-KAM-US003583

PATIENT
  Age: 63 Year
  Sex: Female
  Weight: 100 kg

DRUGS (45)
  1. GLASSIA [Suspect]
     Active Substance: .ALPHA.1-PROTEINASE INHIBITOR HUMAN
     Indication: Alpha-1 antitrypsin deficiency
     Dosage: 60 MILLIGRAM/KILOGRAM, 1/WEEK
  2. GLASSIA [Suspect]
     Active Substance: .ALPHA.1-PROTEINASE INHIBITOR HUMAN
     Dosage: 60 MILLIGRAM/KILOGRAM, 1/WEEK
  3. DIPHENHYDRAMINE HYDROCHLORIDE [Concomitant]
     Active Substance: DIPHENHYDRAMINE HYDROCHLORIDE
  4. REPATHA [Concomitant]
     Active Substance: EVOLOCUMAB
  5. BUDESONIDE [Concomitant]
     Active Substance: BUDESONIDE
  6. EPINEPHRINE [Concomitant]
     Active Substance: EPINEPHRINE
  7. SODIUM CHLORIDE [Concomitant]
     Active Substance: SODIUM CHLORIDE
  8. VITAMIN D3 [Concomitant]
     Active Substance: CHOLECALCIFEROL
  9. DULOXETINE HYDROCHLORIDE [Concomitant]
     Active Substance: DULOXETINE HYDROCHLORIDE
  10. METFORMIN [Concomitant]
     Active Substance: METFORMIN HYDROCHLORIDE
  11. ZEMAIRA [Concomitant]
     Active Substance: .ALPHA.1-PROTEINASE INHIBITOR HUMAN
  12. IPRATROPIUM BROMIDE [Concomitant]
     Active Substance: IPRATROPIUM BROMIDE
  13. TRELEGY ELLIPTA [Concomitant]
     Active Substance: FLUTICASONE FUROATE\UMECLIDINIUM BROMIDE\VILANTEROL TRIFENATATE
  14. FAMOTIDINE [Concomitant]
     Active Substance: FAMOTIDINE
  15. ZINC SULFATE [Concomitant]
     Active Substance: ZINC SULFATE
  16. OXYGEN [Concomitant]
     Active Substance: OXYGEN
  17. BIOTIN [Concomitant]
     Active Substance: BIOTIN
  18. SINGULAIR [Concomitant]
     Active Substance: MONTELUKAST SODIUM
  19. B active [Concomitant]
  20. GABAPENTIN [Concomitant]
     Active Substance: GABAPENTIN
  21. ALBUTEROL SULFATE [Concomitant]
     Active Substance: ALBUTEROL SULFATE
  22. BYSTOLIC [Concomitant]
     Active Substance: NEBIVOLOL HYDROCHLORIDE
  23. LEVOTHYROXINE [Concomitant]
     Active Substance: LEVOTHYROXINE
  24. ALLOPURINOL [Concomitant]
     Active Substance: ALLOPURINOL
  25. Lmx [Concomitant]
  26. PANTOPRAZOLE SODIUM [Concomitant]
     Active Substance: PANTOPRAZOLE SODIUM
  27. CLOPIDOGREL [Concomitant]
     Active Substance: CLOPIDOGREL BISULFATE
  28. AMOXICILLIN [Concomitant]
     Active Substance: AMOXICILLIN
  29. DIGOXIN [Concomitant]
     Active Substance: DIGOXIN
  30. TYLENOL [Concomitant]
     Active Substance: ACETAMINOPHEN
  31. AMLODIPINE BESYLATE [Concomitant]
     Active Substance: AMLODIPINE BESYLATE
  32. SULFASALAZINE [Concomitant]
     Active Substance: SULFASALAZINE
  33. FOLIC ACID [Concomitant]
     Active Substance: FOLIC ACID
  34. ASPIRIN [Concomitant]
     Active Substance: ASPIRIN
  35. MINOCYCLINE HYDROCHLORIDE [Concomitant]
     Active Substance: MINOCYCLINE HYDROCHLORIDE
  36. DIPHENHYDRAMINE [Concomitant]
     Active Substance: DIPHENHYDRAMINE
  37. CLOTRIMAZOLE [Concomitant]
     Active Substance: CLOTRIMAZOLE
  38. DULOXETINE [Concomitant]
     Active Substance: DULOXETINE
  39. DULERA [Concomitant]
     Active Substance: FORMOTEROL FUMARATE DIHYDRATE\MOMETASONE FUROATE
  40. SPIRIVA RESPIMAT [Concomitant]
     Active Substance: TIOTROPIUM BROMIDE
  41. LEVOTHYROXINE SODIUM [Concomitant]
     Active Substance: LEVOTHYROXINE SODIUM
  42. LISINOPRIL [Concomitant]
     Active Substance: LISINOPRIL
  43. METHOTREXATE [Concomitant]
     Active Substance: METHOTREXATE
  44. ZEPBOUND [Concomitant]
     Active Substance: TIRZEPATIDE
  45. HYDROCHLOROTHIAZIDE [Concomitant]
     Active Substance: HYDROCHLOROTHIAZIDE

REACTIONS (27)
  - Arthralgia [Unknown]
  - Erythema [Recovered/Resolved]
  - Blister [Recovered/Resolved]
  - Feeling hot [Recovered/Resolved]
  - Rash papular [Unknown]
  - Fungal infection [Unknown]
  - Peripheral swelling [Recovered/Resolved]
  - Joint swelling [Unknown]
  - Contusion [Recovering/Resolving]
  - Influenza like illness [Unknown]
  - Pain [Unknown]
  - Illness [Unknown]
  - Fall [Unknown]
  - Pain in extremity [Unknown]
  - Head injury [Unknown]
  - Limb injury [Unknown]
  - Skin laceration [Recovering/Resolving]
  - Weight decreased [Unknown]
  - Insurance issue [Unknown]
  - Weight fluctuation [Unknown]
  - Product dose omission issue [Unknown]
  - Diarrhoea [Recovering/Resolving]
  - Sinusitis [Unknown]
  - Bronchitis [Unknown]
  - Back pain [Recovering/Resolving]
  - Fatigue [Unknown]
  - Headache [Recovering/Resolving]

NARRATIVE: CASE EVENT DATE: 20220718
